FAERS Safety Report 6891303-X (Version None)
Quarter: 2010Q3

REPORT INFORMATION
  Report Type: 
  Country: None (occurrence: None)
  Receive Date: 20100731
  Receipt Date: 20090728
  Transmission Date: 20110219
  Serious: No
  Sender: FDA-Public Use
  Company Number: US-PFIZER INC-2009247687

PATIENT
  Sex: Female
  Weight: 79.4 kg

DRUGS (4)
  1. LIPITOR [Suspect]
     Dosage: UNK
  2. NIASPAN [Suspect]
     Indication: BLOOD CHOLESTEROL INCREASED
     Dosage: 500 MG, 1X/DAY
     Route: 048
     Dates: start: 20090707
  3. CRESTOR [Suspect]
     Dosage: UNK
     Route: 048
  4. IODINE [Suspect]
     Dosage: UNK

REACTIONS (5)
  - DYSPNOEA [None]
  - GENERALISED ERYTHEMA [None]
  - HEART RATE INCREASED [None]
  - HYPERSENSITIVITY [None]
  - PRURITUS [None]
